FAERS Safety Report 4287971-1 (Version None)
Quarter: 2004Q1

REPORT INFORMATION
  Report Type: 
  Country: None (occurrence: None)
  Receive Date: 20040205
  Receipt Date: 20040108
  Transmission Date: 20041129
  Serious: Yes (Hospitalization, Disabling)
  Sender: FDA-Public Use
  Company Number: MEDI-0001339 (0)

PATIENT
  Age: 61 Year
  Sex: Male

DRUGS (7)
  1. ETHYOL [Suspect]
     Indication: RADIOTHERAPY
     Dosage: 200 MG/M2, QD, INTRAVENOUS
     Route: 042
     Dates: end: 20031229
  2. ETHYOL [Suspect]
     Indication: RADIOTHERAPY
     Dosage: 200 MG/M2, QD, INTRAVENOUS
     Route: 042
     Dates: start: 20040105, end: 20040105
  3. CHLORHEXIDINE (CHLORHEXIDINE) [Concomitant]
  4. XYLOCAINE [Concomitant]
  5. PARACETAMOL (PARACETAMOL) [Concomitant]
  6. COLOXYL DROPS (DOCUSATE SODIUM) [Concomitant]
  7. GENTIAN VIOLET (METHYLROSANILINIUM CHLORIDE) [Concomitant]

REACTIONS (6)
  - CONDITION AGGRAVATED [None]
  - MALAISE [None]
  - MUCOSAL INFLAMMATION [None]
  - PARAESTHESIA [None]
  - RASH ERYTHEMATOUS [None]
  - SKIN DESQUAMATION [None]
